FAERS Safety Report 18948274 (Version 3)
Quarter: 2021Q4

REPORT INFORMATION
  Report Type: Other
  Country: GB (occurrence: GB)
  Receive Date: 20210227
  Receipt Date: 20211028
  Transmission Date: 20220303
  Serious: Yes (Other)
  Sender: FDA-Public Use
  Company Number: None

PATIENT

DRUGS (3)
  1. MOMETASONE FUROATE [Suspect]
     Active Substance: MOMETASONE FUROATE
     Indication: Rash
     Dosage: UNK, BID (TWICE DAILY)
     Route: 061
     Dates: start: 20210209, end: 20210210
  2. MOMETASONE FUROATE [Suspect]
     Active Substance: MOMETASONE FUROATE
     Indication: Ill-defined disorder
     Dosage: 2 DOSAGE FORM, QD
     Route: 061
     Dates: start: 20210209, end: 20210210
  3. HYDROCORTISONE\MICONAZOLE NITRATE [Concomitant]
     Active Substance: HYDROCORTISONE\MICONAZOLE NITRATE
     Indication: Ill-defined disorder
     Dosage: UNK
     Route: 065

REACTIONS (3)
  - Testicular pain [Recovered/Resolved]
  - Adverse drug reaction [Recovered/Resolved]
  - Testicular disorder [Unknown]

NARRATIVE: CASE EVENT DATE: 20210209
